FAERS Safety Report 13735458 (Version 1)
Quarter: 2017Q3

REPORT INFORMATION
  Report Type: Spontaneous
  Country: US (occurrence: US)
  Receive Date: 20170707
  Receipt Date: 20170707
  Transmission Date: 20171127
  Serious: Yes (Hospitalization, Disabling)
  Sender: FDA-Public Use
  Company Number: None

PATIENT
  Age: 44 Year
  Sex: Female
  Weight: 67.5 kg

DRUGS (2)
  1. LUPRON [Suspect]
     Active Substance: LEUPROLIDE ACETATE
     Indication: IN VITRO FERTILISATION
     Route: 030
     Dates: start: 20160229
  2. LUPRON [Suspect]
     Active Substance: LEUPROLIDE ACETATE
     Indication: ENDOMETRIOSIS
     Route: 030
     Dates: start: 20160229

REACTIONS (25)
  - Memory impairment [None]
  - Constipation [None]
  - Suicidal ideation [None]
  - Osteoporosis [None]
  - Confusional state [None]
  - Pain in extremity [None]
  - Pain [None]
  - Fatigue [None]
  - Paraesthesia [None]
  - Dysphagia [None]
  - Depression [None]
  - Temperature intolerance [None]
  - Tinnitus [None]
  - Chest pain [None]
  - Headache [None]
  - Drug intolerance [None]
  - Endometriosis [None]
  - Pregnancy [None]
  - Nausea [None]
  - Gluten sensitivity [None]
  - Cow^s milk intolerance [None]
  - Alopecia [None]
  - Choking [None]
  - Aphasia [None]
  - Migraine [None]
